FAERS Safety Report 8353951-X (Version None)
Quarter: 2012Q2

REPORT INFORMATION
  Report Type: 
  Country: None (occurrence: None)
  Receive Date: 20120511
  Receipt Date: 20120508
  Transmission Date: 20120825
  Serious: Yes (Other)
  Sender: FDA-Public Use
  Company Number: US-PFIZER INC-2012113287

PATIENT

DRUGS (1)
  1. TORISEL [Suspect]
     Dosage: UNK, CYCLIC (CYCLE 17 DAY 1)

REACTIONS (2)
  - OEDEMA PERIPHERAL [None]
  - OEDEMA [None]
